FAERS Safety Report 4906274-2 (Version None)
Quarter: 2006Q1

REPORT INFORMATION
  Report Type: 
  Country: None (occurrence: None)
  Receive Date: 20060209
  Receipt Date: 20060201
  Transmission Date: 20060701
  Serious: Yes (Life-Threatening, Hospitalization)
  Sender: FDA-Public Use
  Company Number: AT-AVENTIS-200610612EU

PATIENT
  Age: 56 Year
  Sex: Male
  Weight: 79 kg

DRUGS (6)
  1. LOVENOX [Suspect]
     Dosage: DOSE: 40 + 79
     Dates: start: 20060127
  2. LOVENOX [Suspect]
     Dates: start: 20060128
  3. LOVENOX [Suspect]
     Indication: ANGIOPLASTY
     Dosage: DOSE: 40 + 79
     Dates: start: 20060127
  4. LOVENOX [Suspect]
     Dates: start: 20060128
  5. LOVENOX [Suspect]
     Indication: STENT PLACEMENT
     Dosage: DOSE: 40 + 79
     Dates: start: 20060127
  6. LOVENOX [Suspect]
     Dates: start: 20060128

REACTIONS (2)
  - CHOLELITHIASIS [None]
  - MECHANICAL ILEUS [None]
